FAERS Safety Report 17248018 (Version 2)
Quarter: 2020Q1

REPORT INFORMATION
  Report Type: Spontaneous
  Country: US (occurrence: US)
  Receive Date: 20200108
  Receipt Date: 20200121
  Transmission Date: 20200409
  Serious: No
  Sender: FDA-Public Use
  Company Number: US-SA-2020SA004334

PATIENT
  Age: 18 Year
  Sex: Male
  Weight: 46.26 kg

DRUGS (1)
  1. DUPIXENT [Suspect]
     Active Substance: DUPILUMAB
     Indication: ECZEMA
     Dosage: 600 MG, 1X
     Route: 058
     Dates: start: 20191217, end: 20191217

REACTIONS (4)
  - Product dispensing issue [Unknown]
  - Dizziness [Unknown]
  - Vision blurred [Unknown]
  - Product dose omission [Unknown]

NARRATIVE: CASE EVENT DATE: 20191217
